FAERS Safety Report 4615678-7 (Version None)
Quarter: 2005Q1

REPORT INFORMATION
  Report Type: 
  Country: None (occurrence: None)
  Receive Date: 20050317
  Receipt Date: 20050303
  Transmission Date: 20050727
  Serious: Yes (Death, Hospitalization)
  Sender: FDA-Public Use
  Company Number: AZAUS200400076

PATIENT
  Age: 82 Year
  Sex: Male
  Weight: 63 kg

DRUGS (8)
  1. VIDAZA [Suspect]
     Indication: MYELODYSPLASTIC SYNDROME
     Dosage: 75 MG/M2 (127 MG, DAILY), SUBCUTANEOUS
     Route: 058
     Dates: start: 20040823, end: 20040825
  2. PROCRIT [Concomitant]
  3. NEUPOGEN [Concomitant]
  4. ZOLOFT [Concomitant]
  5. TARKA (UDRAMIL) [Concomitant]
  6. PRINIVIL [Concomitant]
  7. ASPIRIN [Concomitant]
  8. PLAVIX [Concomitant]

REACTIONS (16)
  - ABDOMINAL DISCOMFORT [None]
  - ANAEMIA [None]
  - ASTHENIA [None]
  - ATELECTASIS [None]
  - BILIRUBIN CONJUGATED INCREASED [None]
  - BLOOD BILIRUBIN INCREASED [None]
  - BLOOD CREATININE INCREASED [None]
  - FEBRILE NEUTROPENIA [None]
  - INFECTION [None]
  - LEUKOPENIA [None]
  - LUNG INFILTRATION [None]
  - PANCYTOPENIA [None]
  - PLATELET COUNT DECREASED [None]
  - PLEURAL EFFUSION [None]
  - SEPSIS [None]
  - TRANSAMINASES INCREASED [None]
